FAERS Safety Report 24040381 (Version 1)
Quarter: 2024Q3

REPORT INFORMATION
  Report Type: Spontaneous
  Country: CN (occurrence: CN)
  Receive Date: 20240702
  Receipt Date: 20240702
  Transmission Date: 20241017
  Serious: Yes (Hospitalization, Other)
  Sender: BAXTER
  Company Number: None

PATIENT
  Age: 52 Year
  Sex: Male

DRUGS (5)
  1. MESNA [Suspect]
     Active Substance: MESNA
     Indication: Lymphoma
     Dosage: 0.4 G, TID, D1-D5
     Route: 042
     Dates: start: 20240314, end: 20240318
  2. IFOSFAMIDE [Suspect]
     Active Substance: IFOSFAMIDE
     Indication: Lymphoma
     Dosage: 2 G, ONE TIME IN ONE DAY, D1-D4
     Route: 041
     Dates: start: 20240314, end: 20240317
  3. IFOSFAMIDE [Suspect]
     Active Substance: IFOSFAMIDE
     Dosage: 1.5 G, ONE TIME IN ONE DAY, D5
     Route: 041
     Dates: start: 20240318, end: 20240318
  4. ETOPOSIDE [Suspect]
     Active Substance: ETOPOSIDE
     Indication: Lymphoma
     Dosage: 200 MG, ONE TIME IN ONE DAY, D1-D3
     Route: 041
     Dates: start: 20240314, end: 20240316
  5. CARBOPLATIN [Suspect]
     Active Substance: CARBOPLATIN
     Indication: Lymphoma
     Dosage: 0.75 G, ONE TIME IN ONE DAY, D2
     Route: 041
     Dates: start: 20240315, end: 20240315

REACTIONS (1)
  - Myelosuppression [Recovering/Resolving]

NARRATIVE: CASE EVENT DATE: 20240320
